FAERS Safety Report 18228019 (Version 1)
Quarter: 2020Q3

REPORT INFORMATION
  Report Type: Spontaneous
  Country: US (occurrence: US)
  Receive Date: 20200903
  Receipt Date: 20200903
  Transmission Date: 20201103
  Serious: Yes (Other)
  Sender: FDA-Public Use
  Company Number: US-UCBSA-2020033453

PATIENT

DRUGS (2)
  1. PERAMPANEL [Concomitant]
     Active Substance: PERAMPANEL
     Indication: SEIZURE
     Dosage: UNK
  2. LEVETIRACETAM. [Suspect]
     Active Substance: LEVETIRACETAM
     Indication: SEIZURE
     Dosage: UNK

REACTIONS (10)
  - Somnolence [Unknown]
  - Vomiting [Unknown]
  - Headache [Unknown]
  - Influenza [Unknown]
  - Adverse event [Unknown]
  - Dizziness [Unknown]
  - Nasopharyngitis [Unknown]
  - Balance disorder [Unknown]
  - Pyrexia [Unknown]
  - Irritability [Unknown]
